FAERS Safety Report 5237370-0 (Version None)
Quarter: 2007Q1

REPORT INFORMATION
  Report Type: 
  Country: None (occurrence: None)
  Receive Date: 20070213
  Receipt Date: 20070205
  Transmission Date: 20070707
  Serious: Yes (Other)
  Sender: FDA-Public Use
  Company Number: JP-SHR-JP-SHR-03-011730

PATIENT
  Age: 25 Year
  Sex: Female

DRUGS (11)
  1. BETASERON [Suspect]
     Indication: MULTIPLE SCLEROSIS RELAPSE
     Dosage: 4 MIU, EVERY 2D
     Route: 058
     Dates: start: 20020724, end: 20020731
  2. BETASERON [Suspect]
     Dosage: 8 MIU, EVERY 2D
     Route: 058
     Dates: start: 20020801, end: 20021107
  3. SOLU-MEDROL [Concomitant]
     Dosage: 1 G, 1X/DAY
     Route: 042
     Dates: start: 20020711, end: 20020713
  4. SOLU-MEDROL [Concomitant]
     Dosage: 1 G, 1X/DAY
     Route: 042
     Dates: start: 20020722, end: 20020724
  5. CYANOCOBALAMIN [Concomitant]
     Dosage: 500 A?G, 3X/DAY
     Route: 048
     Dates: start: 20020701
  6. MYONAL [Concomitant]
     Dosage: 50 MG, 3X/DAY
     Route: 048
     Dates: start: 20020715
  7. SELBEX [Concomitant]
     Dosage: 50 MG, 3X/DAY
     Route: 048
     Dates: start: 20020715
  8. MYSLEE [Concomitant]
     Indication: INSOMNIA
     Dosage: 10 MG, 1X/DAY
     Route: 048
     Dates: start: 20020708
  9. SILECE [Concomitant]
     Indication: INSOMNIA
     Dosage: 2 MG, 1X/DAY
     Route: 048
     Dates: start: 20020730
  10. PAXIL [Concomitant]
     Indication: ANXIETY
     Dosage: 10 MG, 1X/DAY
     Route: 048
     Dates: start: 20020730, end: 20020801
  11. PAXIL [Concomitant]
     Dosage: 20 MG, 1X/DAY
     Route: 048
     Dates: start: 20020802

REACTIONS (3)
  - MENTAL IMPAIRMENT [None]
  - MULTIPLE SCLEROSIS [None]
  - PARAPLEGIA [None]
